FAERS Safety Report 8853777 (Version 1)
Quarter: 2012Q4

REPORT INFORMATION
  Report Type: 
  Country: GR (occurrence: GR)
  Receive Date: 20121023
  Receipt Date: 20121023
  Transmission Date: 20130627
  Serious: Yes (Other)
  Sender: FDA-Public Use
  Company Number: GR-ELI_LILLY_AND_COMPANY-GR201210003901

PATIENT
  Age: 38 Year
  Sex: Female

DRUGS (2)
  1. FLUOXETINE HYDROCHLORIDE [Suspect]
     Indication: DEPRESSION
     Dosage: 20 mg, unknown
     Dates: start: 201207, end: 20120926
  2. TRANXENE [Concomitant]
     Indication: DEPRESSION
     Dosage: 0.25 DF, bid
     Route: 048
     Dates: start: 201207, end: 20120926

REACTIONS (5)
  - Abortion spontaneous [Unknown]
  - Foetal exposure during pregnancy [Recovered/Resolved]
  - Pregnancy with advanced maternal age [None]
  - Stress [None]
  - Exposure during pregnancy [None]
